FAERS Safety Report 13664831 (Version 1)
Quarter: 2017Q2

REPORT INFORMATION
  Report Type: Spontaneous
  Country: US (occurrence: US)
  Receive Date: 20170619
  Receipt Date: 20170619
  Transmission Date: 20170830
  Serious: Yes (Other)
  Sender: FDA-Public Use
  Company Number: US-SUPERNUS PHARMACEUTICALS, INC.-2017SUP00141

PATIENT
  Age: 49 Year
  Sex: Female
  Weight: 84.35 kg

DRUGS (6)
  1. TROKENDI XR [Suspect]
     Active Substance: TOPIRAMATE
     Indication: MIGRAINE
     Dosage: 200 MG, 1X/DAY
     Route: 048
     Dates: start: 201702, end: 201705
  2. FIORICET [Concomitant]
     Active Substance: ACETAMINOPHEN\BUTALBITAL\CAFFEINE
     Indication: MIGRAINE
     Dosage: 0.25 TABLETS, AS NEEDED
  3. UNSPECIFIED MEDICATIONS [Concomitant]
     Active Substance: UNSPECIFIED INGREDIENT
  4. TROKENDI XR [Suspect]
     Active Substance: TOPIRAMATE
     Dosage: 200 MG, 1X/DAY
     Dates: start: 2017
  5. TROKENDI XR [Suspect]
     Active Substance: TOPIRAMATE
     Dosage: 150 MG, 1X/DAY
     Dates: start: 201705, end: 2017
  6. TROKENDI XR [Suspect]
     Active Substance: TOPIRAMATE
     Indication: MIGRAINE
     Dosage: UNK
     Dates: start: 201612, end: 201702

REACTIONS (8)
  - Hallucinations, mixed [Unknown]
  - Drug ineffective [Not Recovered/Not Resolved]
  - Product taste abnormal [Recovered/Resolved]
  - Retching [Recovered/Resolved]
  - Migraine [Unknown]
  - Paranoia [Unknown]
  - Product odour abnormal [Recovered/Resolved]
  - Hallucination [Unknown]

NARRATIVE: CASE EVENT DATE: 201612
